FAERS Safety Report 6092961-2 (Version None)
Quarter: 2009Q1

REPORT INFORMATION
  Report Type: 
  Country: None (occurrence: None)
  Receive Date: 20090224
  Receipt Date: 20090210
  Transmission Date: 20090719
  Serious: Yes (Death)
  Sender: FDA-Public Use
  Company Number: 2009S1002328

PATIENT
  Age: 60 Year
  Sex: Male

DRUGS (5)
  1. CYCLOPHOSPHAMIDE [Suspect]
     Indication: BURKITT'S LYMPHOMA
  2. METHOTREXATE [Suspect]
     Indication: BURKITT'S LYMPHOMA
  3. BLEOMYCIN SULFATE [Suspect]
     Indication: BURKITT'S LYMPHOMA
  4. VINCRISTINE [Suspect]
     Indication: BURKITT'S LYMPHOMA
  5. DOXORUBICIN HCL [Suspect]
     Indication: BURKITT'S LYMPHOMA

REACTIONS (1)
  - ACUTE MYELOMONOCYTIC LEUKAEMIA [None]
